FAERS Safety Report 5120075-4 (Version None)
Quarter: 2006Q3

REPORT INFORMATION
  Report Type: 
  Country: None (occurrence: None)
  Receive Date: 20060928
  Receipt Date: 20060921
  Transmission Date: 20061208
  Serious: Yes (Other)
  Sender: FDA-Public Use
  Company Number: 2006113833

PATIENT
  Age: 62 Year
  Sex: Male

DRUGS (1)
  1. NICORETTE [Suspect]
     Dosage: 15MG, TRANSDERMAL
     Route: 062
     Dates: start: 20060901, end: 20060901

REACTIONS (2)
  - CHEST DISCOMFORT [None]
  - NAUSEA [None]
